FAERS Safety Report 11424963 (Version 1)
Quarter: 2015Q3

REPORT INFORMATION
  Report Type: Spontaneous
  Country: US (occurrence: US)
  Receive Date: 20150821
  Receipt Date: 20150821
  Transmission Date: 20151125
  Serious: No
  Sender: FDA-Public Use
  Company Number: US-ELI_LILLY_AND_COMPANY-US201104005472

PATIENT
  Sex: Male

DRUGS (2)
  1. HUMULIN R [Suspect]
     Active Substance: INSULIN HUMAN
  2. HUMULIN N [Suspect]
     Active Substance: INSULIN HUMAN

REACTIONS (14)
  - Hyperhidrosis [Unknown]
  - Paraesthesia [Unknown]
  - Gait disturbance [Unknown]
  - Dizziness [Unknown]
  - Vision blurred [Unknown]
  - Palpitations [Unknown]
  - Restlessness [Unknown]
  - Paraesthesia oral [Unknown]
  - Headache [Unknown]
  - Irritability [Unknown]
  - Abnormal behaviour [Unknown]
  - Dysarthria [Unknown]
  - Disturbance in attention [Unknown]
  - Somnolence [Unknown]
